FAERS Safety Report 21977404 (Version 1)
Quarter: 2023Q1

REPORT INFORMATION
  Report Type: Spontaneous
  Country: AU (occurrence: AU)
  Receive Date: 20230210
  Receipt Date: 20230210
  Transmission Date: 20230418
  Serious: Yes (Other)
  Sender: FDA-Public Use
  Company Number: AU-GE HEALTHCARE-2023CSU000804

PATIENT
  Age: 44 Year
  Sex: Male
  Weight: 85 kg

DRUGS (4)
  1. OMNIPAQUE [Suspect]
     Active Substance: IOHEXOL
     Indication: Computerised tomogram coronary artery
     Dosage: 15 ML, SINGLE
     Route: 042
     Dates: start: 20230207, end: 20230207
  2. OMNIPAQUE [Suspect]
     Active Substance: IOHEXOL
     Indication: Familial risk factor
  3. NITROSTAT [Concomitant]
     Active Substance: NITROGLYCERIN
     Indication: Computerised tomogram coronary artery
     Dosage: 0.6 UNKNOWN, SINGLE
     Route: 048
     Dates: start: 20230207, end: 20230207
  4. METOPROLOL [Concomitant]
     Active Substance: METOPROLOL
     Indication: Computerised tomogram coronary artery
     Dosage: 50 MG
     Route: 048
     Dates: start: 20230207, end: 20230207

REACTIONS (3)
  - Feeling abnormal [Recovered/Resolved]
  - Blood pressure decreased [Recovered/Resolved]
  - Dizziness [Recovered/Resolved]

NARRATIVE: CASE EVENT DATE: 20230207
